FAERS Safety Report 12481653 (Version 1)
Quarter: 2016Q2

REPORT INFORMATION
  Report Type: Spontaneous
  Country: US (occurrence: US)
  Receive Date: 20160620
  Receipt Date: 20160620
  Transmission Date: 20160815
  Serious: Yes (Other)
  Sender: FDA-Public Use
  Company Number: US-BAYER-2016-116371

PATIENT
  Age: 53 Year
  Sex: Male

DRUGS (7)
  1. RITONAVIR. [Concomitant]
     Active Substance: RITONAVIR
     Dosage: 2 DF, BID
     Route: 048
  2. LOPINAVIR [Concomitant]
     Active Substance: LOPINAVIR
     Dosage: 2 DF, BID
     Route: 048
  3. TENOFOVIR [Concomitant]
     Active Substance: TENOFOVIR
     Dosage: 1 DF, BID
     Route: 048
  4. SORAFENIB (RAF KINASE INHIBITOR) [Suspect]
     Active Substance: SORAFENIB
     Indication: HEPATOCELLULAR CARCINOMA
     Dosage: 200 MG, BID
     Route: 048
  5. CALCIUM [Concomitant]
     Active Substance: CALCIUM
     Dosage: 1 DF, QD
     Route: 048
  6. PREDNISONE. [Concomitant]
     Active Substance: PREDNISONE
     Dosage: 20 MG, QD
     Route: 048
  7. EMTRICITABINE [Concomitant]
     Active Substance: EMTRICITABINE
     Dosage: 1 DF, BID
     Route: 048

REACTIONS (1)
  - Folliculitis [None]
